FAERS Safety Report 6905965-1 (Version None)
Quarter: 2010Q3

REPORT INFORMATION
  Report Type: 
  Country: None (occurrence: None)
  Receive Date: 20100804
  Receipt Date: 20100723
  Transmission Date: 20110219
  Serious: Yes (Other)
  Sender: FDA-Public Use
  Company Number: US-ELI_LILLY_AND_COMPANY-US201004003978

PATIENT
  Sex: Female

DRUGS (4)
  1. FORTEO [Suspect]
     Indication: OSTEOPOROSIS
     Dosage: 20 UG, DAILY (1/D)
     Dates: start: 20100317
  2. ATENOLOL [Concomitant]
  3. PROTONIX [Concomitant]
  4. ALTACE [Concomitant]
     Indication: BLOOD PRESSURE

REACTIONS (6)
  - ABDOMINAL DISCOMFORT [None]
  - BLINDNESS [None]
  - GLAUCOMA [None]
  - JOINT STIFFNESS [None]
  - JOINT SWELLING [None]
  - PAIN [None]
